FAERS Safety Report 14490780 (Version 5)
Quarter: 2018Q2

REPORT INFORMATION
  Report Type: Spontaneous
  Country: FR (occurrence: FR)
  Receive Date: 20180206
  Receipt Date: 20180525
  Transmission Date: 20180711
  Serious: Yes (Hospitalization, Other)
  Sender: FDA-Public Use
  Company Number: FR-AUROBINDO-AUR-APL-2018-004544

PATIENT
  Age: 34 Year
  Sex: Female

DRUGS (32)
  1. ENOXAPARIN [Suspect]
     Active Substance: ENOXAPARIN
     Indication: THROMBOSIS PROPHYLAXIS
     Dosage: 40 MG/24HR
     Route: 058
  2. MORPHINE [Suspect]
     Active Substance: MORPHINE
     Dosage: 2 MG, QID
     Route: 008
  3. NEFOPAM [Suspect]
     Active Substance: NEFOPAM
     Dosage: 40 MG, QID
     Route: 048
  4. ADRENALIN                          /00003901/ [Suspect]
     Active Substance: EPINEPHRINE
     Indication: ANAESTHESIA
     Dosage: UNK, UNK ()
     Route: 008
  5. ADRENALIN                          /00003901/ [Suspect]
     Active Substance: EPINEPHRINE
     Dosage: UNK ()
     Route: 008
  6. KETOPROFEN TABLET [Suspect]
     Active Substance: KETOPROFEN
     Indication: ANALGESIC THERAPY
     Dosage: 200 MG, DAILY
     Route: 048
  7. MORPHINE [Suspect]
     Active Substance: MORPHINE
     Dosage: 2 MG, QID
     Route: 008
  8. PARACETAMOL TABLET [Suspect]
     Active Substance: ACETAMINOPHEN
     Indication: ANALGESIC THERAPY
     Dosage: 4 G, DAILY
     Route: 048
  9. LIDOCAINE. [Suspect]
     Active Substance: LIDOCAINE
     Indication: EPIDURAL ANALGESIA
  10. ROPIVACAINE [Suspect]
     Active Substance: ROPIVACAINE
     Dosage: IN TOTAL
     Route: 008
  11. ADRENALIN                          /00003901/ [Suspect]
     Active Substance: EPINEPHRINE
     Indication: ANAESTHESIA
     Dosage: UNK
     Route: 008
  12. ENOXAPARIN [Suspect]
     Active Substance: ENOXAPARIN
     Dosage: 40 MG/24HR
     Route: 058
  13. ROPIVACAINE [Suspect]
     Active Substance: ROPIVACAINE
     Indication: ANAESTHESIA
     Dosage: 20 MG, UNK
     Route: 008
  14. ROPIVACAINE [Suspect]
     Active Substance: ROPIVACAINE
     Route: 065
  15. ROPIVACAINE [Suspect]
     Active Substance: ROPIVACAINE
     Dosage: 20 MG, TOTAL
     Route: 008
  16. EPINEPHRINE. [Suspect]
     Active Substance: EPINEPHRINE
     Indication: ANAESTHESIA
     Dosage: 2 MILLIGRAM
     Route: 008
  17. MORPHINE [Suspect]
     Active Substance: MORPHINE
     Dosage: 2 MG, QID
     Route: 008
  18. NEFOPAM [Suspect]
     Active Substance: NEFOPAM
     Indication: ANALGESIC THERAPY
     Dosage: 160 MG, DAILY
     Route: 048
  19. NEFOPAM [Suspect]
     Active Substance: NEFOPAM
     Dosage: 40 MG, QID
  20. NEFOPAM [Suspect]
     Active Substance: NEFOPAM
     Route: 048
  21. ACETYLSALICYLIC ACID [Suspect]
     Active Substance: ASPIRIN
     Indication: PRODUCT USED FOR UNKNOWN INDICATION
     Dosage: ()
     Route: 065
  22. ENOXAPARIN [Suspect]
     Active Substance: ENOXAPARIN
     Dosage: 40 MG/24HR
     Route: 058
  23. MORPHINE [Suspect]
     Active Substance: MORPHINE
     Indication: ANALGESIC THERAPY
     Dosage: 8 MG, FOUR TIMES/DAY
     Route: 008
  24. SUFENTANIL [Suspect]
     Active Substance: SUFENTANIL
     Indication: ANAESTHESIA
     Dosage: 5 ?G, UNK
     Route: 008
  25. SUFENTANIL [Suspect]
     Active Substance: SUFENTANIL
     Indication: EPIDURAL ANALGESIA
  26. ROPIVACAINE [Suspect]
     Active Substance: ROPIVACAINE
     Indication: EPIDURAL ANALGESIA
     Dosage: 20 MG, UNK
     Route: 008
  27. ROPIVACAINE [Suspect]
     Active Substance: ROPIVACAINE
     Route: 065
  28. KETOPROFEN TABLET [Suspect]
     Active Substance: KETOPROFEN
     Dosage: 50 MG, QID
     Route: 048
  29. LIDOCAINE. [Suspect]
     Active Substance: LIDOCAINE
     Indication: ANAESTHESIA
     Dosage: 300 MG, TOTAL
     Route: 008
  30. ROPIVACAINE [Suspect]
     Active Substance: ROPIVACAINE
     Dosage: 20 MG, TOTAL
     Route: 008
  31. ROPIVACAINE [Suspect]
     Active Substance: ROPIVACAINE
     Dosage: IN TOTAL
     Route: 008
  32. NEFOPAM [Suspect]
     Active Substance: NEFOPAM
     Dosage: 40 MG, QID
     Route: 048

REACTIONS (12)
  - Epidural analgesia [Unknown]
  - Nervous system disorder [Recovering/Resolving]
  - Paraesthesia [Recovered/Resolved]
  - Peripheral nerve injury [Recovered/Resolved]
  - Gait disturbance [Recovered/Resolved]
  - Live birth [Unknown]
  - Product use issue [Unknown]
  - Foetal heart rate abnormal [Recovering/Resolving]
  - Epistaxis [Unknown]
  - Spinal epidural haemorrhage [Recovered/Resolved]
  - Maternal exposure during pregnancy [Recovered/Resolved]
  - Neuropathy peripheral [Recovered/Resolved]
